FAERS Safety Report 8335634 (Version 2)
Quarter: 2013Q2

REPORT INFORMATION
  Report Type: Spontaneous
  Country: US (occurrence: None)
  Receive Date: 20111130
  Receipt Date: 20120531
  Transmission Date: 20140414
  Serious: Yes (Disabling, Other)
  Sender: FDA-Public Use
  Company Number: US201106004034

PATIENT
  Age: 48 Year
  Sex: Female
  Weight: 78 kg

DRUGS (8)
  1. BYETTA [Suspect]
     Indication: TYPE 2 DIABETES MELLITUS
     Route: 058
     Dates: start: 20100228, end: 20100315
  2. ACTOS (PIOGLITAZONE HYDROCHLORIDE) [Concomitant]
  3. ATENOLOL (ATENOLOL) [Concomitant]
  4. FERROUS SULFATE (FERROUS SULFATE) [Concomitant]
  5. LISINOPRIL (LISINOPRIL) [Concomitant]
  6. MULTIVITAMIN (VITAMINS NOS) [Concomitant]
  7. SIMVASTATIN (SIMVASTATIN) [Concomitant]
  8. SYNTHROID (LEVOTHYROXINE SODIUM) [Concomitant]

REACTIONS (2)
  - PANCREATITIS [None]
  - RENAL DISORDER [None]
